FAERS Safety Report 4454214-5 (Version None)
Quarter: 2004Q3

REPORT INFORMATION
  Report Type: 
  Country: None (occurrence: None)
  Receive Date: 20040826
  Receipt Date: 20040430
  Transmission Date: 20050211
  Serious: No
  Sender: FDA-Public Use
  Company Number: WAES 0405USA00027

PATIENT
  Age: 63 Year
  Sex: Female

DRUGS (4)
  1. ZETIA [Suspect]
     Indication: BLOOD CHOLESTEROL INCREASED
     Dosage: 10 MG/DAILY/PO; 20 MG/DAILY/PO; 10 MG/DAILY/PO
     Route: 048
     Dates: start: 20030401, end: 20040318
  2. ZETIA [Suspect]
     Indication: BLOOD CHOLESTEROL INCREASED
     Dosage: 10 MG/DAILY/PO; 20 MG/DAILY/PO; 10 MG/DAILY/PO
     Route: 048
     Dates: start: 20040319, end: 20040419
  3. ZETIA [Suspect]
     Indication: BLOOD CHOLESTEROL INCREASED
     Dosage: 10 MG/DAILY/PO; 20 MG/DAILY/PO; 10 MG/DAILY/PO
     Route: 048
     Dates: start: 20040427, end: 20040430
  4. NORVASC [Concomitant]

REACTIONS (4)
  - ABDOMINAL PAIN UPPER [None]
  - FATIGUE [None]
  - MEDICATION ERROR [None]
  - NAUSEA [None]
